FAERS Safety Report 13609561 (Version 1)
Quarter: 2017Q2

REPORT INFORMATION
  Report Type: Spontaneous
  Country: US (occurrence: US)
  Receive Date: 20170602
  Receipt Date: 20170602
  Transmission Date: 20170830
  Serious: Yes (Death)
  Sender: FDA-Public Use
  Company Number: US-LUNDBECK-DKLU2032206

PATIENT
  Age: 94 Year
  Sex: Male

DRUGS (2)
  1. NORTHERA [Suspect]
     Active Substance: DROXIDOPA
     Indication: PSYCHOTIC DISORDER
     Route: 048
     Dates: start: 20160718, end: 20170523
  2. NORTHERA [Suspect]
     Active Substance: DROXIDOPA
     Indication: HALLUCINATION

REACTIONS (1)
  - Death [Fatal]

NARRATIVE: CASE EVENT DATE: 20170523
